FAERS Safety Report 8031112-1 (Version None)
Quarter: 2012Q1

REPORT INFORMATION
  Report Type: 
  Country: None (occurrence: None)
  Receive Date: 20120109
  Receipt Date: 20120106
  Transmission Date: 20120608
  Serious: Yes (Hospitalization)
  Sender: FDA-Public Use
  Company Number: GB-ROCHE-1028123

PATIENT
  Age: 62 Year
  Sex: Female
  Weight: 88 kg

DRUGS (8)
  1. DICLOFENAC [Concomitant]
  2. ACETAMINOPHEN [Concomitant]
  3. PREDNISOLONE [Concomitant]
     Indication: RHEUMATOID ARTHRITIS
  4. ACTEMRA [Suspect]
     Indication: RHEUMATOID ARTHRITIS
     Route: 042
     Dates: start: 20110830, end: 20111103
  5. METHOTREXATE [Concomitant]
     Indication: RHEUMATOID ARTHRITIS
  6. AMITRIPTYLINE HCL [Concomitant]
  7. FOLIC ACID [Concomitant]
  8. SIMVASTATIN [Concomitant]

REACTIONS (4)
  - PAIN IN EXTREMITY [None]
  - BACK PAIN [None]
  - CHEST PAIN [None]
  - HEADACHE [None]
